FAERS Safety Report 13022336 (Version 2)
Quarter: 2016Q4

REPORT INFORMATION
  Report Type: Spontaneous
  Country: JP (occurrence: JP)
  Receive Date: 20161213
  Receipt Date: 20161222
  Transmission Date: 20170207
  Serious: Yes (Disabling)
  Sender: FDA-Public Use
  Company Number: PHHY2016JP170108

PATIENT
  Age: 75 Year
  Sex: Female

DRUGS (2)
  1. RANMARK [Suspect]
     Active Substance: DENOSUMAB
     Indication: BONE LESION
     Dosage: UNK
     Route: 058
     Dates: start: 201108, end: 201505
  2. ZOMETA [Suspect]
     Active Substance: ZOLEDRONIC ACID
     Indication: BONE LESION
     Dosage: UNK
     Route: 041
     Dates: start: 201103, end: 201107

REACTIONS (5)
  - Exposed bone in jaw [Unknown]
  - Breath odour [Unknown]
  - Osteonecrosis of jaw [Unknown]
  - Gingival swelling [Unknown]
  - Tooth abscess [Unknown]

NARRATIVE: CASE EVENT DATE: 201505
